FAERS Safety Report 9675193 (Version 2)
Quarter: 2013Q4

REPORT INFORMATION
  Report Type: Spontaneous
  Country: US (occurrence: US)
  Receive Date: 20131107
  Receipt Date: 20131227
  Transmission Date: 20140711
  Serious: No
  Sender: FDA-Public Use
  Company Number: US-PFIZER INC-2013314709

PATIENT
  Age: 75 Year
  Sex: Male
  Weight: 89.34 kg

DRUGS (1)
  1. CELEBREX [Suspect]
     Indication: ARTHRITIS
     Dosage: 200 MG, 1X/DAY

REACTIONS (2)
  - Product quality issue [Unknown]
  - Tongue neoplasm [Not Recovered/Not Resolved]
